FAERS Safety Report 20417495 (Version 1)
Quarter: 2022Q1

REPORT INFORMATION
  Report Type: Spontaneous
  Country: US (occurrence: US)
  Receive Date: 20220202
  Receipt Date: 20220202
  Transmission Date: 20220424
  Serious: No
  Sender: FDA-Public Use
  Company Number: US-PFIZER INC-2021673434

PATIENT
  Age: 56 Year
  Sex: Male

DRUGS (2)
  1. IBRANCE [Suspect]
     Active Substance: PALBOCICLIB
     Indication: Breast cancer male
     Dosage: 100 MG, CYCLIC, EVERY DAY FOR 21 DAYS THEN 7 DAYS OFF
     Dates: start: 20210119
  2. IBRANCE [Suspect]
     Active Substance: PALBOCICLIB
     Dosage: 125 MG
     Dates: start: 20211029

REACTIONS (4)
  - Constipation [Unknown]
  - Stomatitis [Unknown]
  - Fatigue [Unknown]
  - Hot flush [Unknown]
